FAERS Safety Report 8225548-3 (Version None)
Quarter: 2012Q1

REPORT INFORMATION
  Report Type: 
  Country: None (occurrence: None)
  Receive Date: 20120321
  Receipt Date: 20120305
  Transmission Date: 20120608
  Serious: Yes (Other)
  Sender: FDA-Public Use
  Company Number: CHPA2012US004528

PATIENT
  Sex: Female

DRUGS (2)
  1. DRUG THERAPY NOS [Concomitant]
  2. EXCEDRIN EXTRA STRENGTH TABLETS [Suspect]
     Indication: PAIN
     Dosage: UNK , UNK
     Route: 048
     Dates: start: 19820101

REACTIONS (3)
  - ACQUIRED IMMUNODEFICIENCY SYNDROME [None]
  - UPPER LIMB FRACTURE [None]
  - FEELING ABNORMAL [None]
